FAERS Safety Report 23040877 (Version 4)
Quarter: 2023Q4

REPORT INFORMATION
  Report Type: Spontaneous
  Country: AU (occurrence: AU)
  Receive Date: 20231006
  Receipt Date: 20231109
  Transmission Date: 20240110
  Serious: Yes (Other)
  Sender: FDA-Public Use
  Company Number: AU-BEH-2023163798

PATIENT
  Age: 75 Year
  Sex: Male
  Weight: 97 kg

DRUGS (14)
  1. HUMAN IMMUNOGLOBULIN G [Suspect]
     Active Substance: HUMAN IMMUNOGLOBULIN G
     Indication: Renal transplant
     Dosage: 85 GRAM
     Route: 042
     Dates: start: 20230906, end: 20230906
  2. HUMAN IMMUNOGLOBULIN G [Suspect]
     Active Substance: HUMAN IMMUNOGLOBULIN G
     Dosage: UNK
     Route: 042
     Dates: start: 20230906, end: 20230906
  3. HUMAN IMMUNOGLOBULIN G [Suspect]
     Active Substance: HUMAN IMMUNOGLOBULIN G
     Dosage: UNK
     Route: 042
     Dates: start: 20230906, end: 20230906
  4. CYCLOSPORINE [Concomitant]
     Active Substance: CYCLOSPORINE
  5. EVEROLIMUS [Concomitant]
     Active Substance: EVEROLIMUS
  6. PREDNISOLONE [Concomitant]
     Active Substance: PREDNISOLONE
  7. BACTRIM [Concomitant]
     Active Substance: SULFAMETHOXAZOLE\TRIMETHOPRIM
  8. CANDESARTAN [Concomitant]
     Active Substance: CANDESARTAN
  9. ROSUVASTATIN [Concomitant]
     Active Substance: ROSUVASTATIN
  10. ASPIRIN [Concomitant]
     Active Substance: ASPIRIN
  11. ATENOLOL [Concomitant]
     Active Substance: ATENOLOL
  12. DULOXETINE [Concomitant]
     Active Substance: DULOXETINE
  13. MAGNESIUM ASPARTATE [Concomitant]
     Active Substance: MAGNESIUM ASPARTATE
  14. VITAMINS [Concomitant]
     Active Substance: VITAMINS

REACTIONS (3)
  - Angioedema [Recovered/Resolved]
  - No adverse event [Unknown]
  - Off label use [Unknown]

NARRATIVE: CASE EVENT DATE: 20230906
